FAERS Safety Report 5160922-3 (Version None)
Quarter: 2006Q4

REPORT INFORMATION
  Report Type: 
  Country: None (occurrence: None)
  Receive Date: 20061130
  Receipt Date: 20061120
  Transmission Date: 20070319
  Serious: Yes (Other)
  Sender: FDA-Public Use
  Company Number: GB-ABBOTT-06P-167-0351210-00

PATIENT
  Age: 43 Year
  Sex: Male

DRUGS (1)
  1. REDUCTIL 10 MG [Suspect]
     Indication: OBESITY
     Route: 048
     Dates: start: 20061115

REACTIONS (2)
  - COLITIS ULCERATIVE [None]
  - CONDITION AGGRAVATED [None]
